FAERS Safety Report 21404098 (Version 1)
Quarter: 2022Q4

REPORT INFORMATION
  Report Type: Report from Study
  Country: US (occurrence: US)
  Receive Date: 20221003
  Receipt Date: 20221003
  Transmission Date: 20230112
  Serious: Yes (Other)
  Sender: FDA-Public Use
  Company Number: US-TAKEDA-US201931737

PATIENT
  Sex: Female

DRUGS (5)
  1. CINRYZE [Suspect]
     Active Substance: HUMAN C1-ESTERASE INHIBITOR
     Indication: Immune system disorder
     Dosage: 1000 INTERNATIONAL UNIT,ONCE IN 3 DAYS
     Route: 042
     Dates: start: 2010
  2. CINRYZE [Suspect]
     Active Substance: HUMAN C1-ESTERASE INHIBITOR
     Indication: Immune system disorder
     Dosage: 1000 INTERNATIONAL UNIT,ONCE IN 3 DAYS
     Route: 042
     Dates: start: 2010
  3. CINRYZE [Suspect]
     Active Substance: HUMAN C1-ESTERASE INHIBITOR
     Indication: Immune system disorder
     Dosage: 1000 INTERNATIONAL UNIT,ONCE IN 3 DAYS
     Route: 042
     Dates: start: 2010
  4. LANADELUMAB [Suspect]
     Active Substance: LANADELUMAB
     Indication: Hereditary angioedema
     Dosage: 300 MILLIGRAM, Q4WEEKS
     Route: 058
     Dates: start: 20220203
  5. LANADELUMAB [Suspect]
     Active Substance: LANADELUMAB
     Indication: Immune system disorder

REACTIONS (2)
  - Shoulder operation [Unknown]
  - Treatment noncompliance [Unknown]
